FAERS Safety Report 20910237 (Version 2)
Quarter: 2022Q2

REPORT INFORMATION
  Report Type: Report from Study
  Country: IN (occurrence: IN)
  Receive Date: 20220603
  Receipt Date: 20220610
  Transmission Date: 20220720
  Serious: Yes (Death)
  Sender: FDA-Public Use
  Company Number: IN-NOVARTISPH-NVSC2022IN127750

PATIENT
  Age: 62 Year
  Sex: Female

DRUGS (1)
  1. RIBOCICLIB [Suspect]
     Active Substance: RIBOCICLIB
     Indication: Breast cancer metastatic
     Dosage: 400 MG, QD (200 MG-2 TABS)
     Route: 065
     Dates: start: 20200915, end: 202112

REACTIONS (1)
  - Death [Fatal]

NARRATIVE: CASE EVENT DATE: 20211221
